FAERS Safety Report 9896374 (Version 1)
Quarter: 2014Q1

REPORT INFORMATION
  Report Type: Spontaneous
  Country: US (occurrence: US)
  Receive Date: 20140213
  Receipt Date: 20140213
  Transmission Date: 20141002
  Serious: No
  Sender: FDA-Public Use
  Company Number: US-BRISTOL-MYERS SQUIBB COMPANY-19099811

PATIENT
  Age: 54 Year
  Sex: Female
  Weight: 76.19 kg

DRUGS (13)
  1. ABATACEPT SUBQ INJECTION 125MG/ML [Suspect]
     Indication: RHEUMATOID ARTHRITIS
     Dosage: 1DF:125MG/ML
     Route: 058
  2. KLONOPIN [Concomitant]
     Dosage: TABS
  3. SINGULAIR [Concomitant]
     Dosage: TABS
  4. PROTONIX [Concomitant]
     Dosage: TABS
  5. ESTROGEL GEL [Concomitant]
  6. SYNTHROID [Concomitant]
     Dosage: TABS
  7. PROVENTIL INHALER [Concomitant]
     Route: 055
  8. LAMICTAL [Concomitant]
     Dosage: TABS
  9. ADVAIR DISKUS [Concomitant]
     Dosage: 1DF:100/50 UNITS NOS
  10. LEXAPRO [Concomitant]
     Dosage: TABS
  11. DESMOPRESSIN [Concomitant]
     Dosage: STRENGTH:0.01%
  12. ABILIFY TABS 5 MG [Concomitant]
  13. ACETAMINOPHEN + HYDROCODONE [Concomitant]
     Dosage: 1DF:5-500MG CAPS

REACTIONS (1)
  - White blood cell count decreased [Unknown]
